FAERS Safety Report 7351080-5 (Version None)
Quarter: 2011Q1

REPORT INFORMATION
  Report Type: 
  Country: None (occurrence: None)
  Receive Date: 20110314
  Receipt Date: 20110214
  Transmission Date: 20110831
  Serious: Yes (Hospitalization)
  Sender: FDA-Public Use
  Company Number: US-BAYER-201024225NA

PATIENT
  Sex: Female
  Weight: 86.168 kg

DRUGS (17)
  1. OCELLA [Suspect]
     Indication: ACNE
  2. PROTONIX [Concomitant]
     Indication: GASTROOESOPHAGEAL REFLUX DISEASE
  3. BENTYL [Concomitant]
     Indication: MUSCLE SPASMS
  4. NAPROXEN [Concomitant]
     Indication: PAINFUL RESPIRATION
     Dosage: UNK
     Dates: start: 20020813
  5. NAPROXEN [Concomitant]
     Dosage: UNK
     Dates: start: 20050221
  6. BENTYL [Concomitant]
     Indication: PAIN
     Dosage: UNK
     Dates: start: 20041001
  7. LORTAB [Concomitant]
  8. YASMIN [Suspect]
     Indication: ACNE
     Dosage: UNK
     Dates: start: 20020101, end: 20080101
  9. PROTONIX [Concomitant]
     Indication: DYSPEPSIA
  10. YASMIN [Suspect]
     Indication: CONTRACEPTION
  11. PHENERGAN [Concomitant]
  12. YAZ [Suspect]
     Indication: ACNE
  13. YAZ [Suspect]
     Indication: CONTRACEPTION
  14. YASMIN [Suspect]
     Indication: PREMENSTRUAL SYNDROME
  15. MOTRIN [Concomitant]
  16. PENICILLIN [Concomitant]
  17. TYLENOL REGULAR [Concomitant]

REACTIONS (5)
  - CHOLECYSTITIS CHRONIC [None]
  - BILIARY DYSKINESIA [None]
  - DEEP VEIN THROMBOSIS [None]
  - PAIN [None]
  - CHOLECYSTITIS [None]
